FAERS Safety Report 5400250-1 (Version None)
Quarter: 2007Q3

REPORT INFORMATION
  Report Type: 
  Country: None (occurrence: None)
  Receive Date: 20070727
  Receipt Date: 20070727
  Transmission Date: 20080115
  Serious: No
  Sender: FDA-Public Use
  Company Number: None

PATIENT
  Age: 72 Year
  Sex: Male

DRUGS (2)
  1. LEVAQUIN [Suspect]
     Indication: CHRONIC OBSTRUCTIVE PULMONARY DISEASE
     Dosage: 500 MG DAILY IV
     Route: 042
     Dates: start: 20070724, end: 20070725
  2. LEVAQUIN [Suspect]
     Indication: CONDITION AGGRAVATED
     Dosage: 500 MG DAILY IV
     Route: 042
     Dates: start: 20070724, end: 20070725

REACTIONS (2)
  - INFUSION SITE ERYTHEMA [None]
  - PRURITUS [None]
